FAERS Safety Report 12967654 (Version 1)
Quarter: 2016Q4

REPORT INFORMATION
  Report Type: Spontaneous
  Country: US (occurrence: US)
  Receive Date: 20161123
  Receipt Date: 20161123
  Transmission Date: 20170207
  Serious: No
  Sender: FDA-Public Use
  Company Number: US-TEVA-608413USA

PATIENT
  Sex: Male
  Weight: 64.47 kg

DRUGS (1)
  1. OXYBUTYNIN [Suspect]
     Active Substance: OXYBUTYNIN
     Indication: POLLAKIURIA
     Dates: start: 20151104

REACTIONS (6)
  - Nausea [Unknown]
  - Vision blurred [Unknown]
  - Dizziness [Unknown]
  - Pollakiuria [Unknown]
  - Drug ineffective [Unknown]
  - Chest pain [Unknown]
